FAERS Safety Report 9865966 (Version 1)
Quarter: 2014Q1

REPORT INFORMATION
  Report Type: Spontaneous
  Country: US (occurrence: US)
  Receive Date: 20140203
  Receipt Date: 20140203
  Transmission Date: 20141002
  Serious: No
  Sender: FDA-Public Use
  Company Number: US-ALLERGAN-1313495US

PATIENT
  Age: 59 Year
  Sex: Male

DRUGS (3)
  1. RESTASIS [Suspect]
     Indication: DRY EYE
     Dosage: 2 GTT, BID
     Route: 047
  2. VITAMINS                           /00067501/ [Concomitant]
     Indication: SUPPLEMENTATION THERAPY
     Dosage: UNK
  3. OTC EYE DROP NOS [Concomitant]
     Indication: EYE LUBRICATION THERAPY
     Dosage: UNK

REACTIONS (3)
  - Ocular hyperaemia [Unknown]
  - Eye pain [Unknown]
  - Vision blurred [Unknown]
